FAERS Safety Report 18274055 (Version 1)
Quarter: 2020Q3

REPORT INFORMATION
  Report Type: Spontaneous
  Country: DE (occurrence: DE)
  Receive Date: 20200916
  Receipt Date: 20200916
  Transmission Date: 20201103
  Serious: Yes (Hospitalization)
  Sender: FDA-Public Use
  Company Number: NVSC2020DE249593

PATIENT
  Age: 66 Year
  Sex: Male

DRUGS (1)
  1. CEFPODOXIME PROXETIL. [Suspect]
     Active Substance: CEFPODOXIME PROXETIL
     Indication: PRODUCT USED FOR UNKNOWN INDICATION
     Dosage: 200 MG (200 MG, SEIT 27072020)
     Route: 065

REACTIONS (4)
  - Pallor [Unknown]
  - Hypotension [Unknown]
  - General physical health deterioration [Unknown]
  - Dizziness [Unknown]
